FAERS Safety Report 8247520-X (Version None)
Quarter: 2012Q1

REPORT INFORMATION
  Report Type: 
  Country: None (occurrence: None)
  Receive Date: 20120330
  Receipt Date: 20120323
  Transmission Date: 20120608
  Serious: Yes (Other)
  Sender: FDA-Public Use
  Company Number: JP-PFIZER INC-2012031219

PATIENT
  Age: 52 Year
  Sex: Female

DRUGS (4)
  1. LYRICA [Suspect]
     Dosage: 50 MG, 1X/DAY
     Route: 048
     Dates: start: 20120123, end: 20120127
  2. DICLOFENAC SODIUM [Suspect]
     Dosage: 37.5 MG, 1X/DAY
     Route: 048
     Dates: start: 20120128, end: 20120203
  3. FAMOTIDINE [Suspect]
     Dosage: 10 MG, 1X/DAY
     Dates: start: 20120128, end: 20120203
  4. LYRICA [Suspect]
     Dosage: 75 MG, 1X/DAY
     Route: 048
     Dates: start: 20120128, end: 20120203

REACTIONS (2)
  - OEDEMA [None]
  - WEIGHT INCREASED [None]
